FAERS Safety Report 21768382 (Version 2)
Quarter: 2023Q1

REPORT INFORMATION
  Report Type: Spontaneous
  Country: US (occurrence: US)
  Receive Date: 20221222
  Receipt Date: 20230113
  Transmission Date: 20230418
  Serious: Yes (Other)
  Sender: FDA-Public Use
  Company Number: US-TEVA-2022-US-2837403

PATIENT
  Age: 89 Year
  Sex: Female

DRUGS (1)
  1. HYDRALAZINE [Suspect]
     Active Substance: HYDRALAZINE HYDROCHLORIDE
     Indication: Product used for unknown indication
     Dosage: 300 MILLIGRAM DAILY; THREE TIMES A DAY
     Route: 065

REACTIONS (2)
  - Anti-neutrophil cytoplasmic antibody positive vasculitis [Recovering/Resolving]
  - Renal impairment [Recovering/Resolving]
